FAERS Safety Report 18832507 (Version 1)
Quarter: 2021Q1

REPORT INFORMATION
  Report Type: Spontaneous
  Country: FR (occurrence: FR)
  Receive Date: 20210203
  Receipt Date: 20210203
  Transmission Date: 20210419
  Serious: Yes (Life-Threatening, Hospitalization, Other)
  Sender: FDA-Public Use
  Company Number: FR-AUROBINDO-AUR-APL-2021-004402

PATIENT
  Age: 79 Year
  Sex: Male
  Weight: 64 kg

DRUGS (2)
  1. CLOZAPINE. [Suspect]
     Active Substance: CLOZAPINE
     Indication: SCHIZOPHRENIA
     Dosage: 100 MILLIGRAM, ONCE A DAY
     Route: 048
  2. TRAMADOL HYDROCHLORIDE. [Suspect]
     Active Substance: TRAMADOL HYDROCHLORIDE
     Indication: PROCEDURAL PAIN
     Dosage: 150 MILLIGRAM, ONCE A DAY
     Route: 048
     Dates: start: 20201027

REACTIONS (1)
  - Epilepsy [Recovering/Resolving]

NARRATIVE: CASE EVENT DATE: 20210113
